FAERS Safety Report 21484968 (Version 1)
Quarter: 2022Q4

REPORT INFORMATION
  Report Type: Spontaneous
  Country: US (occurrence: US)
  Receive Date: 20221020
  Receipt Date: 20221020
  Transmission Date: 20230112
  Serious: Yes (Life-Threatening, Hospitalization, Other)
  Sender: FDA-Public Use
  Company Number: US-LUPIN PHARMACEUTICALS INC.-2022-12240

PATIENT
  Age: 74 Year
  Sex: Male

DRUGS (1)
  1. METFORMIN [Suspect]
     Active Substance: METFORMIN HYDROCHLORIDE
     Indication: Product used for unknown indication
     Dosage: UNK (FOR THE PAST 2 WEEKS)
     Route: 065

REACTIONS (16)
  - Lactic acidosis [Recovering/Resolving]
  - Prescription drug used without a prescription [Unknown]
  - Overdose [Unknown]
  - Toxicity to various agents [Recovering/Resolving]
  - Abdominal pain [Recovering/Resolving]
  - Nausea [Recovering/Resolving]
  - Vomiting [Recovering/Resolving]
  - Mental status changes [Recovering/Resolving]
  - Tachypnoea [Recovering/Resolving]
  - Tachycardia [Recovering/Resolving]
  - Hypotension [Recovering/Resolving]
  - Electrocardiogram T wave peaked [Recovering/Resolving]
  - Hyperkalaemia [Recovering/Resolving]
  - Cardiac arrest [Recovered/Resolved]
  - Vasoplegia syndrome [Recovered/Resolved]
  - Shock [Recovered/Resolved]
